FAERS Safety Report 17089388 (Version 2)
Quarter: 2020Q1

REPORT INFORMATION
  Report Type: Spontaneous
  Country: FR (occurrence: FR)
  Receive Date: 20191128
  Receipt Date: 20200219
  Transmission Date: 20200409
  Serious: Yes (Death)
  Sender: FDA-Public Use
  Company Number: NVSC2019FR050743

PATIENT
  Age: 66 Year
  Sex: Male

DRUGS (24)
  1. DEXAMETHASONE. [Suspect]
     Active Substance: DEXAMETHASONE
     Indication: HAEMORRHAGIC DISORDER
  2. GEMCITABINE. [Suspect]
     Active Substance: GEMCITABINE
     Indication: HAEMORRHAGIC DISORDER
  3. ROMIPLOSTIM [Suspect]
     Active Substance: ROMIPLOSTIM
     Indication: HAEMORRHAGIC DISORDER
  4. DEXAMETHASONE. [Suspect]
     Active Substance: DEXAMETHASONE
     Indication: GASTROINTESTINAL HAEMORRHAGE
  5. DEXAMETHASONE. [Suspect]
     Active Substance: DEXAMETHASONE
     Indication: IMMUNE THROMBOCYTOPENIC PURPURA
     Dosage: 160 MG, 4 DAYS
     Route: 042
  6. RITUXIMAB. [Suspect]
     Active Substance: RITUXIMAB
     Indication: IMMUNE THROMBOCYTOPENIC PURPURA
     Dosage: 375 MG/M2, QW, 4 INJECTIONS
     Route: 065
  7. GEMCITABINE. [Suspect]
     Active Substance: GEMCITABINE
     Indication: GASTROINTESTINAL HAEMORRHAGE
  8. VINCRISTINE [Suspect]
     Active Substance: VINCRISTINE
     Indication: HAEMORRHAGIC DISORDER
  9. DOXORUBICIN [Suspect]
     Active Substance: DOXORUBICIN
     Indication: HAEMORRHAGIC DISORDER
  10. ROMIPLOSTIM [Suspect]
     Active Substance: ROMIPLOSTIM
     Indication: GASTROINTESTINAL HAEMORRHAGE
  11. PREDNISOLONE. [Suspect]
     Active Substance: PREDNISOLONE
     Indication: IMMUNE THROMBOCYTOPENIC PURPURA
     Dosage: UNK
     Route: 065
  12. VINBLASTINE [Suspect]
     Active Substance: VINBLASTINE
     Indication: IMMUNE THROMBOCYTOPENIC PURPURA
     Dosage: UNK
     Route: 065
  13. RITUXIMAB. [Suspect]
     Active Substance: RITUXIMAB
     Indication: HAEMORRHAGIC DISORDER
  14. VINCRISTINE [Suspect]
     Active Substance: VINCRISTINE
     Indication: GASTROINTESTINAL HAEMORRHAGE
  15. DOXORUBICIN [Suspect]
     Active Substance: DOXORUBICIN
     Indication: IMMUNE THROMBOCYTOPENIC PURPURA
     Dosage: UNK
     Route: 065
  16. GEMCITABINE. [Suspect]
     Active Substance: GEMCITABINE
     Indication: IMMUNE THROMBOCYTOPENIC PURPURA
     Dosage: UNK
     Route: 065
  17. PREDNISOLONE. [Suspect]
     Active Substance: PREDNISOLONE
     Indication: GASTROINTESTINAL HAEMORRHAGE
  18. ROMIPLOSTIM [Suspect]
     Active Substance: ROMIPLOSTIM
     Indication: IMMUNE THROMBOCYTOPENIC PURPURA
     Dosage: 0.01 MG/KG
     Route: 065
  19. DOXORUBICIN [Suspect]
     Active Substance: DOXORUBICIN
     Indication: GASTROINTESTINAL HAEMORRHAGE
  20. RITUXIMAB. [Suspect]
     Active Substance: RITUXIMAB
     Indication: GASTROINTESTINAL HAEMORRHAGE
  21. PREDNISOLONE. [Suspect]
     Active Substance: PREDNISOLONE
     Indication: HAEMORRHAGIC DISORDER
  22. VINCRISTINE [Suspect]
     Active Substance: VINCRISTINE
     Indication: IMMUNE THROMBOCYTOPENIC PURPURA
     Dosage: 1 MG/M2, QW, 4 INJECTIONS
     Route: 065
  23. VINBLASTINE [Suspect]
     Active Substance: VINBLASTINE
     Indication: HAEMORRHAGIC DISORDER
  24. VINBLASTINE [Suspect]
     Active Substance: VINBLASTINE
     Indication: GASTROINTESTINAL HAEMORRHAGE

REACTIONS (1)
  - Hodgkin^s disease [Fatal]
